FAERS Safety Report 12146412 (Version 1)
Quarter: 2016Q1

REPORT INFORMATION
  Report Type: Spontaneous
  Country: ES (occurrence: ES)
  Receive Date: 20160304
  Receipt Date: 20160304
  Transmission Date: 20160526
  Serious: Yes (Hospitalization)
  Sender: FDA-Public Use
  Company Number: ES-SEBELA IRELAND LIMITED-2016SEB00014

PATIENT
  Age: 31 Year
  Sex: Female

DRUGS (4)
  1. LABETALOL HYDROCHLORIDE. [Suspect]
     Active Substance: LABETALOL HYDROCHLORIDE
     Indication: HYPERTENSION
  2. METAMIZOLE [Concomitant]
     Active Substance: METAMIZOLE
     Route: 065
  3. ALPHA-METHYLDOPA [Concomitant]
     Active Substance: METHYLDOPA
     Route: 065
  4. HYDRALAZINE [Concomitant]
     Active Substance: HYDRALAZINE HYDROCHLORIDE
     Route: 065

REACTIONS (1)
  - Acute generalised exanthematous pustulosis [Unknown]
